FAERS Safety Report 9801457 (Version 1)
Quarter: 2014Q1

REPORT INFORMATION
  Report Type: Spontaneous
  Country: AU (occurrence: AU)
  Receive Date: 20140107
  Receipt Date: 20140107
  Transmission Date: 20141002
  Serious: Yes (Hospitalization)
  Sender: FDA-Public Use
  Company Number: AU-PFIZER INC-2013374854

PATIENT
  Age: 66 Year
  Sex: Female

DRUGS (2)
  1. FLUOROURACIL [Suspect]
     Indication: RECTAL ADENOCARCINOMA
     Dosage: 650MG (450MG/M2) WEEKLY
  2. LEUCOVORIN [Concomitant]
     Indication: RECTAL ADENOCARCINOMA
     Dosage: 50 MG, UNK

REACTIONS (3)
  - Stress cardiomyopathy [Recovered/Resolved]
  - Intracardiac thrombus [Recovered/Resolved]
  - Embolic stroke [Recovered/Resolved]
